FAERS Safety Report 8574506-8 (Version None)
Quarter: 2012Q3

REPORT INFORMATION
  Report Type: 
  Country: None (occurrence: None)
  Receive Date: 20120806
  Receipt Date: 20111230
  Transmission Date: 20120928
  Serious: No
  Sender: FDA-Public Use
  Company Number: US-ABBOTT-11P-163-0862813-00

PATIENT
  Sex: Female
  Weight: 61.29 kg

DRUGS (2)
  1. PERPHENAZINE [Suspect]
     Indication: BIPOLAR DISORDER
     Dates: start: 20110601, end: 20110930
  2. DEPAKOTE ER [Suspect]
     Indication: BIPOLAR DISORDER
     Dates: start: 20110601, end: 20111001

REACTIONS (7)
  - DECREASED APPETITE [None]
  - WEIGHT DECREASED [None]
  - PAIN [None]
  - ALOPECIA [None]
  - VISION BLURRED [None]
  - NAUSEA [None]
  - ARTHRALGIA [None]
